FAERS Safety Report 7899026-5 (Version None)
Quarter: 2011Q4

REPORT INFORMATION
  Report Type: 
  Country: None (occurrence: None)
  Receive Date: 20111107
  Receipt Date: 20111024
  Transmission Date: 20120403
  Serious: Yes (Other)
  Sender: FDA-Public Use
  Company Number: JP-ROCHE-773681

PATIENT
  Sex: Female

DRUGS (19)
  1. AZULFIDINE [Concomitant]
     Route: 048
  2. ACTEMRA [Suspect]
     Route: 041
     Dates: start: 20080717, end: 20080717
  3. ACTEMRA [Suspect]
     Route: 041
     Dates: start: 20080918, end: 20080918
  4. ACTEMRA [Suspect]
     Route: 041
     Dates: start: 20090205, end: 20090205
  5. METHOTREXATE [Concomitant]
     Route: 048
  6. ACTEMRA [Suspect]
     Indication: RHEUMATOID ARTHRITIS
     Route: 041
     Dates: start: 20080619, end: 20080619
  7. ACTEMRA [Suspect]
     Route: 041
     Dates: start: 20081016, end: 20081016
  8. ISONIAZID [Concomitant]
     Route: 048
  9. PREDNISOLONE [Concomitant]
     Route: 048
  10. ALENDRONATE SODIUM [Concomitant]
     Route: 048
  11. SERMION [Concomitant]
     Route: 048
  12. ACTEMRA [Suspect]
     Route: 041
     Dates: start: 20081113, end: 20081113
  13. ACTEMRA [Suspect]
     Route: 041
  14. PREDNISOLONE [Concomitant]
     Route: 048
     Dates: start: 20080731, end: 20080821
  15. ACTEMRA [Suspect]
     Route: 041
     Dates: start: 20080821, end: 20080821
  16. ACTEMRA [Suspect]
     Route: 041
     Dates: start: 20081211, end: 20081211
  17. ACTEMRA [Suspect]
     Route: 041
     Dates: start: 20090703, end: 20100820
  18. VITAMEDIN [Concomitant]
     Route: 048
  19. FAMOTIDINE [Concomitant]
     Route: 048

REACTIONS (2)
  - LUMBAR SPINAL STENOSIS [None]
  - HAEMOPTYSIS [None]
